FAERS Safety Report 5777227-X (Version None)
Quarter: 2008Q2

REPORT INFORMATION
  Report Type: 
  Country: None (occurrence: None)
  Receive Date: 20080616
  Receipt Date: 20080529
  Transmission Date: 20081010
  Serious: Yes (Hospitalization, Other)
  Sender: FDA-Public Use
  Company Number: FABR-1000264

PATIENT
  Age: 64 Year
  Sex: Male

DRUGS (1)
  1. FABRAZYME [Suspect]
     Indication: FABRY'S DISEASE
     Dosage: 70 MG/ Q2W, INTRAVENOUS
     Route: 042
     Dates: start: 20031204

REACTIONS (2)
  - MALAISE [None]
  - VENTRICULAR TACHYCARDIA [None]
